FAERS Safety Report 18514961 (Version 1)
Quarter: 2020Q4

REPORT INFORMATION
  Report Type: Spontaneous
  Country: US (occurrence: US)
  Receive Date: 20201118
  Receipt Date: 20201118
  Transmission Date: 20210114
  Serious: No
  Sender: FDA-Public Use
  Company Number: US-UCBSA-2020023846

PATIENT
  Age: 67 Year
  Sex: Female

DRUGS (10)
  1. LEVETIRACETAM. [Suspect]
     Active Substance: LEVETIRACETAM
     Indication: STATUS EPILEPTICUS
     Dosage: UNK
  2. VALPROATE [Suspect]
     Active Substance: VALPROIC ACID
     Indication: STATUS EPILEPTICUS
     Dosage: UNK
  3. LORAZEPAM. [Suspect]
     Active Substance: LORAZEPAM
     Indication: STATUS EPILEPTICUS
     Dosage: UNK
  4. LACOSAMIDE. [Suspect]
     Active Substance: LACOSAMIDE
     Indication: STATUS EPILEPTICUS
     Dosage: UNK
  5. LEVETIRACETAM. [Suspect]
     Active Substance: LEVETIRACETAM
     Indication: OFF LABEL USE
  6. BRIVARACETAM [Suspect]
     Active Substance: BRIVARACETAM
     Indication: STATUS EPILEPTICUS
     Dosage: LOADING DOSE OF 200 MG
     Route: 042
  7. FOSPHENYTOIN [Suspect]
     Active Substance: FOSPHENYTOIN
     Indication: STATUS EPILEPTICUS
     Dosage: UNK
  8. BRIVARACETAM [Suspect]
     Active Substance: BRIVARACETAM
     Indication: OFF LABEL USE
     Dosage: 100 MILLIGRAM, 3X/DAY (TID)
     Route: 042
  9. CLOBAZAM. [Suspect]
     Active Substance: CLOBAZAM
     Indication: STATUS EPILEPTICUS
     Dosage: UNK
  10. LACOSAMIDE. [Suspect]
     Active Substance: LACOSAMIDE
     Indication: OFF LABEL USE

REACTIONS (2)
  - Off label use [Unknown]
  - Multiple-drug resistance [Recovering/Resolving]
